FAERS Safety Report 7379062-8 (Version None)
Quarter: 2011Q1

REPORT INFORMATION
  Report Type: 
  Country: None (occurrence: None)
  Receive Date: 20110328
  Receipt Date: 20110321
  Transmission Date: 20110831
  Serious: Yes (Other)
  Sender: FDA-Public Use
  Company Number: US-US-EMD SERONO, INC.-7049110

PATIENT
  Sex: Female

DRUGS (1)
  1. REBIF [Suspect]
     Indication: MULTIPLE SCLEROSIS
     Route: 058
     Dates: start: 20100310

REACTIONS (3)
  - HUMAN PAPILLOMA VIRUS TEST POSITIVE [None]
  - PRECANCEROUS CELLS PRESENT [None]
  - CERVICITIS TRICHOMONAL [None]
